FAERS Safety Report 21602343 (Version 3)
Quarter: 2023Q1

REPORT INFORMATION
  Report Type: Spontaneous
  Country: GB (occurrence: GB)
  Receive Date: 20221116
  Receipt Date: 20230303
  Transmission Date: 20230418
  Serious: Yes (Death, Other)
  Sender: FDA-Public Use
  Company Number: GB-BRISTOL-MYERS SQUIBB COMPANY-2022-136399

PATIENT
  Sex: Female

DRUGS (1)
  1. REVLIMID [Suspect]
     Active Substance: LENALIDOMIDE
     Indication: Angioimmunoblastic T-cell lymphoma
     Dates: start: 20211122, end: 20220405

REACTIONS (2)
  - Acute kidney injury [Fatal]
  - Malignant neoplasm progression [Fatal]
